FAERS Safety Report 8123340-1 (Version None)
Quarter: 2012Q1

REPORT INFORMATION
  Report Type: 
  Country: None (occurrence: None)
  Receive Date: 20120208
  Receipt Date: 20120203
  Transmission Date: 20120608
  Serious: Yes (Other)
  Sender: FDA-Public Use
  Company Number: US-AMGEN-US380367

PATIENT
  Age: 17 Year
  Sex: Male
  Weight: 112 kg

DRUGS (14)
  1. DIPHENHYDRAMINE HCL [Concomitant]
  2. FUROSEMIDE [Concomitant]
  3. METHYLPREDNISOLONE SODIUM SUCCINATE [Concomitant]
  4. ACETAMINOPHEN [Concomitant]
  5. IRON [Concomitant]
  6. CLONIDINE [Concomitant]
  7. MORPHINE [Concomitant]
  8. AMITRIPTYLINE HCL [Concomitant]
  9. POTASSIUM CHLORIDE [Concomitant]
  10. CORTICOSTEROID NOS [Concomitant]
     Dosage: UNK UNK, UNK
     Route: 065
  11. DOCUSATE [Concomitant]
  12. LANSOPRAZOLE [Concomitant]
  13. NPLATE [Suspect]
     Indication: IDIOPATHIC THROMBOCYTOPENIC PURPURA
     Dosage: 500 MUG, UNK
     Route: 058
     Dates: start: 20091007
  14. MAGNESIUM [Concomitant]

REACTIONS (1)
  - PLATELET COUNT DECREASED [None]
